FAERS Safety Report 4388265-6 (Version None)
Quarter: 2004Q2

REPORT INFORMATION
  Report Type: 
  Country: None (occurrence: None)
  Receive Date: 20040630
  Receipt Date: 20040630
  Transmission Date: 20050107
  Serious: Yes (Life-Threatening)
  Sender: FDA-Public Use
  Company Number: None

PATIENT
  Age: 86 Year
  Sex: Female
  Weight: 61.2356 kg

DRUGS (7)
  1. CAPTOPRIL [Suspect]
     Indication: HYPERTENSION
     Dosage: 25 MG BID PO
     Route: 048
     Dates: start: 20040610, end: 20040624
  2. ASPIRIN [Concomitant]
  3. NORVASC [Concomitant]
  4. LUVOX [Concomitant]
  5. FRAGMIN [Concomitant]
  6. SERZONE [Concomitant]
  7. SENOKOT [Concomitant]

REACTIONS (1)
  - LEUKOPENIA [None]
